FAERS Safety Report 23225518 (Version 1)
Quarter: 2023Q4

REPORT INFORMATION
  Report Type: Spontaneous
  Country: BR (occurrence: BR)
  Receive Date: 20231124
  Receipt Date: 20231124
  Transmission Date: 20240109
  Serious: Yes (Death)
  Sender: FDA-Public Use
  Company Number: BR-TEVA BRAZIL-2023-BR-2949436

PATIENT

DRUGS (1)
  1. TRISENOX [Suspect]
     Active Substance: ARSENIC TRIOXIDE
     Indication: Acute promyelocytic leukaemia
     Route: 065
     Dates: start: 2023

REACTIONS (2)
  - Coagulopathy [Fatal]
  - Bone pain [Unknown]

NARRATIVE: CASE EVENT DATE: 20230101
